FAERS Safety Report 7361344-7 (Version None)
Quarter: 2011Q1

REPORT INFORMATION
  Report Type: 
  Country: None (occurrence: None)
  Receive Date: 20110318
  Receipt Date: 20110310
  Transmission Date: 20110831
  Serious: Yes (Death)
  Sender: FDA-Public Use
  Company Number: B0705844A

PATIENT
  Age: 2 Year

DRUGS (1)
  1. ATRIANCE [Suspect]
     Dates: start: 20110211, end: 20110215

REACTIONS (1)
  - CEREBELLAR SYNDROME [None]
